FAERS Safety Report 17896480 (Version 1)
Quarter: 2020Q2

REPORT INFORMATION
  Report Type: Spontaneous
  Country: US (occurrence: US)
  Receive Date: 20200615
  Receipt Date: 20200615
  Transmission Date: 20200714
  Serious: No
  Sender: FDA-Public Use
  Company Number: US-TEVA-2020-US-1247978

PATIENT
  Sex: Female

DRUGS (2)
  1. BUPRENORPHINE TEVA [Suspect]
     Active Substance: BUPRENORPHINE
     Indication: UNEVALUABLE THERAPY
     Dosage: 20 MCG / HR
     Route: 062
  2. BUPRENORPHINE TEVA [Suspect]
     Active Substance: BUPRENORPHINE
     Indication: PAIN

REACTIONS (2)
  - Product quality issue [Unknown]
  - Drug ineffective [Unknown]
